FAERS Safety Report 5550877-1 (Version None)
Quarter: 2007Q4

REPORT INFORMATION
  Report Type: 
  Country: None (occurrence: None)
  Receive Date: 20071210
  Receipt Date: 20071122
  Transmission Date: 20080405
  Serious: Yes (Hospitalization)
  Sender: FDA-Public Use
  Company Number: S07-FRA-05263-01

PATIENT
  Age: 54 Year
  Sex: Female

DRUGS (3)
  1. ESCITALOPRAM [Suspect]
     Indication: DEPRESSION
     Dosage: 10 MG BID PO
     Route: 048
     Dates: start: 20060908, end: 20061020
  2. ESCITALOPRAM [Suspect]
     Indication: DEPRESSION
     Dosage: 10 MG QD PO
     Route: 048
     Dates: start: 20060622, end: 20060907
  3. VICTAN (ETHYL LOFLAZEPATE) [Concomitant]

REACTIONS (9)
  - ANOREXIA [None]
  - ANTEROGRADE AMNESIA [None]
  - BRAIN NEOPLASM [None]
  - CONFUSIONAL STATE [None]
  - DEPRESSED MOOD [None]
  - DEPRESSION [None]
  - DISTURBANCE IN ATTENTION [None]
  - PSYCHOMOTOR RETARDATION [None]
  - WEIGHT DECREASED [None]
